FAERS Safety Report 19032765 (Version 2)
Quarter: 2021Q3

REPORT INFORMATION
  Report Type: Spontaneous
  Country: JP (occurrence: JP)
  Receive Date: 20210319
  Receipt Date: 20210716
  Transmission Date: 20211014
  Serious: Yes (Death, Hospitalization)
  Sender: FDA-Public Use
  Company Number: JP-EISAI MEDICAL RESEARCH-EC-2021-089909

PATIENT
  Age: 80 Year
  Sex: Male
  Weight: 51 kg

DRUGS (1)
  1. LENVIMA [Suspect]
     Active Substance: LENVATINIB
     Indication: HEPATOCELLULAR CARCINOMA
     Route: 048
     Dates: start: 20210109, end: 20210127

REACTIONS (2)
  - Colitis ischaemic [Recovered/Resolved]
  - Death [Fatal]

NARRATIVE: CASE EVENT DATE: 20210118
